FAERS Safety Report 5628752-3 (Version None)
Quarter: 2008Q1

REPORT INFORMATION
  Report Type: 
  Country: None (occurrence: None)
  Receive Date: 20080215
  Receipt Date: 20080206
  Transmission Date: 20080703
  Serious: Yes (Other)
  Sender: FDA-Public Use
  Company Number: US-PFIZER INC-2008012545

PATIENT
  Sex: Male
  Weight: 77.272 kg

DRUGS (13)
  1. CHANTIX [Suspect]
     Indication: SMOKING CESSATION THERAPY
  2. GLIPIZIDE [Suspect]
     Indication: DIABETES MELLITUS
  3. HUMALOG [Suspect]
     Indication: DIABETES MELLITUS
  4. LANTUS [Suspect]
     Indication: DIABETES MELLITUS
  5. METFORMIN HCL [Suspect]
     Indication: DIABETES MELLITUS
  6. PRILOSEC [Concomitant]
  7. LEVOTHYROXINE SODIUM [Concomitant]
  8. LIPITOR [Concomitant]
  9. COZAAR [Concomitant]
     Indication: HYPERTENSION
  10. ASPIRIN [Concomitant]
  11. CONCERTA [Concomitant]
     Indication: ATTENTION DEFICIT/HYPERACTIVITY DISORDER
  12. SERTRALINE [Concomitant]
  13. OMEPRAZOLE [Concomitant]

REACTIONS (2)
  - BLOOD GLUCOSE INCREASED [None]
  - DIABETES MELLITUS INADEQUATE CONTROL [None]
